FAERS Safety Report 25657374 (Version 5)
Quarter: 2025Q3

REPORT INFORMATION
  Report Type: Report from Study
  Country: EU (occurrence: EU)
  Receive Date: 20250808
  Receipt Date: 20250825
  Transmission Date: 20251021
  Serious: Yes (Death, Hospitalization, Other)
  Sender: ABBVIE
  Company Number: EU-ABBVIE-6333246

PATIENT
  Age: 66 Year
  Sex: Male

DRUGS (2)
  1. FOSCARBIDOPA\FOSLEVODOPA [Suspect]
     Active Substance: FOSCARBIDOPA\FOSLEVODOPA
     Indication: Parkinson^s disease
     Route: 058
     Dates: start: 20250521
  2. FOSCARBIDOPA\FOSLEVODOPA [Suspect]
     Active Substance: FOSCARBIDOPA\FOSLEVODOPA
     Route: 058
     Dates: start: 2025

REACTIONS (17)
  - Parkinson^s disease [Fatal]
  - Infusion site erythema [Recovering/Resolving]
  - Mental disorder [Not Recovered/Not Resolved]
  - Infusion site nodule [Recovering/Resolving]
  - On and off phenomenon [Not Recovered/Not Resolved]
  - Diarrhoea [Not Recovered/Not Resolved]
  - Infusion site induration [Recovering/Resolving]
  - Hypertension [Recovered/Resolved]
  - Delusion [Not Recovered/Not Resolved]
  - Suicidal ideation [Not Recovered/Not Resolved]
  - Behaviour disorder [Not Recovered/Not Resolved]
  - Depressed mood [Not Recovered/Not Resolved]
  - Infusion site inflammation [Not Recovered/Not Resolved]
  - Confusional state [Unknown]
  - Compulsive shopping [Unknown]
  - Completed suicide [Fatal]
  - Infusion site infection [Recovering/Resolving]

NARRATIVE: CASE EVENT DATE: 20250101
